FAERS Safety Report 6840433-7 (Version None)
Quarter: 2010Q3

REPORT INFORMATION
  Report Type: 
  Country: None (occurrence: None)
  Receive Date: 20100714
  Receipt Date: 20100629
  Transmission Date: 20110219
  Serious: Yes (Hospitalization)
  Sender: FDA-Public Use
  Company Number: FR-JNJFOC-20100702970

PATIENT
  Sex: Female

DRUGS (7)
  1. IXPRIM [Suspect]
     Indication: PAIN
     Dosage: 37.5 + 325 MG
     Route: 065
  2. INDAPAMIDE [Suspect]
     Indication: HYPERTENSION
     Route: 048
  3. KENZEN [Suspect]
     Indication: HYPERTENSION
     Route: 048
  4. FENOFIBRATE [Suspect]
     Indication: HYPERCHOLESTEROLAEMIA
     Route: 048
  5. DITROPAN [Suspect]
     Indication: URINARY INCONTINENCE
     Route: 048
  6. FENTANYL [Concomitant]
  7. FORTIMEL [Concomitant]

REACTIONS (3)
  - DYSPEPSIA [None]
  - HYPONATRAEMIA [None]
  - INAPPROPRIATE ANTIDIURETIC HORMONE SECRETION [None]
